FAERS Safety Report 11573086 (Version 1)
Quarter: 2015Q3

REPORT INFORMATION
  Report Type: Spontaneous
  Country: US (occurrence: US)
  Receive Date: 20150916
  Receipt Date: 20150916
  Transmission Date: 20151125
  Serious: No
  Sender: FDA-Public Use
  Company Number: US-ELI_LILLY_AND_COMPANY-US200910006754

PATIENT
  Age: 82 Year

DRUGS (2)
  1. FORTEO [Suspect]
     Active Substance: TERIPARATIDE
     Dosage: UNK, UNKNOWN
     Dates: start: 2009
  2. FORTEO [Suspect]
     Active Substance: TERIPARATIDE
     Dosage: UNK, UNKNOWN
     Dates: start: 200907, end: 2009

REACTIONS (22)
  - Dyspnoea [Unknown]
  - Arthritis [Unknown]
  - Gait disturbance [Unknown]
  - Feeling abnormal [Unknown]
  - Gastric disorder [Unknown]
  - Dyskinesia [Unknown]
  - Dysstasia [Unknown]
  - Cardiac failure congestive [Unknown]
  - Tremor [Unknown]
  - Boredom [Unknown]
  - Pain in extremity [Unknown]
  - Nasopharyngitis [Unknown]
  - Decreased appetite [Unknown]
  - Sleep disorder [Unknown]
  - Arthralgia [Unknown]
  - Cardiomegaly [Unknown]
  - Myalgia [Unknown]
  - Crying [Unknown]
  - Musculoskeletal stiffness [Unknown]
  - Abdominal pain upper [Unknown]
  - Hypokinesia [Unknown]
  - Injection site bruising [Unknown]

NARRATIVE: CASE EVENT DATE: 2009
